FAERS Safety Report 6399086-7 (Version None)
Quarter: 2009Q4

REPORT INFORMATION
  Report Type: 
  Country: None (occurrence: None)
  Receive Date: 20091008
  Receipt Date: 20090930
  Transmission Date: 20100525
  Serious: Yes (Other)
  Sender: FDA-Public Use
  Company Number: DSA_41776_2009

PATIENT
  Age: 15 Year
  Sex: Male

DRUGS (1)
  1. XENAZINE [Suspect]
     Indication: TOURETTE'S DISORDER
     Dosage: (12.5 MG QD)
     Dates: start: 20090504

REACTIONS (1)
  - SUICIDAL IDEATION [None]
